FAERS Safety Report 5480206-3 (Version None)
Quarter: 2007Q4

REPORT INFORMATION
  Report Type: 
  Country: None (occurrence: None)
  Receive Date: 20071009
  Receipt Date: 20071001
  Transmission Date: 20080405
  Serious: Yes (Other)
  Sender: FDA-Public Use
  Company Number: TW-AMGEN-US242114

PATIENT
  Sex: Female

DRUGS (5)
  1. ARANESP [Suspect]
     Indication: RENAL FAILURE CHRONIC
     Route: 042
     Dates: start: 20061014
  2. FOLIC ACID [Concomitant]
  3. ALINAMIN F [Concomitant]
  4. VITAMIN B COMPLEX CAP [Concomitant]
  5. CALCIUM CARBONATE [Concomitant]

REACTIONS (2)
  - APLASIA PURE RED CELL [None]
  - UPPER GASTROINTESTINAL HAEMORRHAGE [None]
